FAERS Safety Report 9438143 (Version 1)
Quarter: 2013Q3

REPORT INFORMATION
  Report Type: Spontaneous
  Country: US (occurrence: US)
  Receive Date: 20130802
  Receipt Date: 20130802
  Transmission Date: 20140515
  Serious: No
  Sender: FDA-Public Use
  Company Number: US-BRISTOL-MYERS SQUIBB COMPANY-16928483

PATIENT
  Age: 62 Year
  Sex: Female

DRUGS (2)
  1. WARFARIN SODIUM [Suspect]
     Route: 065
  2. LETAIRIS [Suspect]
     Dosage: TABLET. DOSE INCREASED TO 10MG FROM 5MG
     Route: 048
     Dates: start: 20120423

REACTIONS (1)
  - Skin burning sensation [Unknown]
